FAERS Safety Report 10700246 (Version 2)
Quarter: 2015Q1

REPORT INFORMATION
  Report Type: Report from Study
  Country: AU (occurrence: AU)
  Receive Date: 20150109
  Receipt Date: 20150206
  Transmission Date: 20150721
  Serious: Yes (Other)
  Sender: FDA-Public Use
  Company Number: AU-ROCHE-1519149

PATIENT
  Sex: Female

DRUGS (3)
  1. MABTHERA [Suspect]
     Active Substance: RITUXIMAB
     Indication: ANTIPHOSPHOLIPID SYNDROME
     Dosage: 4 DOSES
     Route: 065
  2. MABTHERA [Suspect]
     Active Substance: RITUXIMAB
     Indication: ISCHAEMIA
  3. MABTHERA [Suspect]
     Active Substance: RITUXIMAB
     Indication: ABDOMINAL PAIN

REACTIONS (3)
  - Intestinal ischaemia [Unknown]
  - Pain [Unknown]
  - Renal infarct [Unknown]
